FAERS Safety Report 15153427 (Version 1)
Quarter: 2018Q3

REPORT INFORMATION
  Report Type: Report from Study
  Country: US (occurrence: US)
  Receive Date: 20180717
  Receipt Date: 20180717
  Transmission Date: 20181010
  Serious: Yes (Hospitalization, Other)
  Sender: FDA-Public Use
  Company Number: US-BRISTOL-MYERS SQUIBB COMPANY-BMS-2018-065416

PATIENT
  Age: 44 Year
  Sex: Male
  Weight: 76.1 kg

DRUGS (1)
  1. NIVOLUMAB [Suspect]
     Active Substance: NIVOLUMAB
     Indication: GLIOMA
     Dosage: 240 MG, Q2WK
     Route: 042
     Dates: start: 20180613, end: 20180628

REACTIONS (3)
  - Vomiting [Unknown]
  - Brain oedema [Unknown]
  - Headache [Unknown]

NARRATIVE: CASE EVENT DATE: 20180710
